FAERS Safety Report 22852177 (Version 5)
Quarter: 2024Q1

REPORT INFORMATION
  Report Type: Spontaneous
  Country: US (occurrence: US)
  Receive Date: 20230823
  Receipt Date: 20240103
  Transmission Date: 20240409
  Serious: Yes (Other)
  Sender: FDA-Public Use
  Company Number: US-BRISTOL-MYERS SQUIBB COMPANY-2023-117377

PATIENT
  Age: 78 Year
  Sex: Female

DRUGS (2)
  1. LENALIDOMIDE [Suspect]
     Active Substance: LENALIDOMIDE
     Indication: Plasma cell myeloma
     Dosage: TAKE 1 WHOLE CAPSULE BY MOUTH WITH WATER EVERY OTHER DAY FOR 21 DAYS WITH 7 DAYS OFF. DO NOT BREAK,
     Route: 048
     Dates: start: 20230719
  2. LENALIDOMIDE [Suspect]
     Active Substance: LENALIDOMIDE
     Indication: Neoplasm malignant
     Dosage: TAKE 1 CAPSULE BY MOUTH EVERY DAY FOR 21 DAYS THEN 7 DAYS OFF
     Route: 048
     Dates: start: 20230719

REACTIONS (5)
  - Rash [Recovering/Resolving]
  - Malaise [Recovering/Resolving]
  - Nausea [Recovered/Resolved]
  - Vomiting [Unknown]
  - Product dose omission in error [Unknown]
